FAERS Safety Report 4355192-X (Version None)
Quarter: 2004Q2

REPORT INFORMATION
  Report Type: 
  Country: None (occurrence: None)
  Receive Date: 20040510
  Receipt Date: 20040329
  Transmission Date: 20050107
  Serious: Yes (Life-Threatening, Hospitalization, Other)
  Sender: FDA-Public Use
  Company Number: PHHO2004KR04979

PATIENT
  Age: 22 Year
  Sex: Male

DRUGS (5)
  1. CLOZARIL [Suspect]
     Indication: SCHIZOPHRENIA, DISORGANISED TYPE
     Dosage: UNKNOWN
     Route: 048
     Dates: start: 20040130, end: 20040316
  2. CLOZARIL [Suspect]
     Dosage: 400 MG
     Dates: start: 20040316, end: 20040328
  3. MAGNESIUM OXIDE [Concomitant]
     Indication: CONSTIPATION
     Dosage: 1000 MG
     Dates: start: 20040302, end: 20040328
  4. ATIVAN [Concomitant]
     Indication: AGITATION
     Dosage: 1 MG
     Dates: start: 20040318, end: 20040328
  5. HALOPERIDOL [Concomitant]

REACTIONS (6)
  - AGRANULOCYTOSIS [None]
  - ENTEROCOLITIS INFECTIOUS [None]
  - INTESTINAL STENOSIS [None]
  - MARKEDLY REDUCED DIETARY INTAKE [None]
  - PHARYNGOTONSILLITIS [None]
  - PYREXIA [None]
